FAERS Safety Report 8575051-6 (Version None)
Quarter: 2012Q2

REPORT INFORMATION
  Report Type: 
  Country: None (occurrence: None)
  Receive Date: 20120423
  Receipt Date: 20100225
  Transmission Date: 20120825
  Serious: Yes (Hospitalization)
  Sender: FDA-Public Use
  Company Number: PHEH2009US14389

PATIENT
  Sex: Female
  Weight: 57.3 kg

DRUGS (20)
  1. PHENERGAN HCL [Concomitant]
  2. ZOCOR [Concomitant]
  3. ASPIRIN [Concomitant]
  4. ATIVAN [Concomitant]
  5. MECLIZINE [Concomitant]
  6. TRIAZOLAM [Concomitant]
  7. EXJADE [Suspect]
     Dosage: 1125 MG, OD, ORAL, 500 MG, QD, ORAL
     Route: 048
     Dates: start: 20080131, end: 20091214
  8. EXJADE [Suspect]
     Dosage: 1125 MG, OD, ORAL, 500 MG, QD, ORAL
     Route: 048
     Dates: start: 20100101
  9. ISOSORBIDE DINITRATE [Concomitant]
  10. LOMOTIL [Concomitant]
  11. COREG [Concomitant]
  12. PANCRELIPASE (PANCRELIPASE) [Concomitant]
  13. SYNTHROID [Concomitant]
  14. TYLENOL W/ CODEINE NO. 3 [Concomitant]
  15. ADALAT CC [Concomitant]
  16. SINGULAIR [Concomitant]
  17. VALIUM [Concomitant]
  18. LEVSINEX [Concomitant]
  19. PLAVIX [Concomitant]
  20. PRILOSEC [Concomitant]

REACTIONS (2)
  - LIVER DISORDER [None]
  - DIARRHOEA [None]
